FAERS Safety Report 9915496 (Version 1)
Quarter: 2014Q1

REPORT INFORMATION
  Report Type: Report from Study
  Country: BR (occurrence: BR)
  Receive Date: 20140221
  Receipt Date: 20140221
  Transmission Date: 20141002
  Serious: Yes (Hospitalization)
  Sender: FDA-Public Use
  Company Number: BR-ROCHE-1351340

PATIENT
  Sex: Female
  Weight: 52 kg

DRUGS (6)
  1. ACTEMRA [Suspect]
     Indication: RHEUMATOID ARTHRITIS
     Route: 042
     Dates: start: 20120703, end: 20130516
  2. MICARDIS [Concomitant]
  3. ATENOLOL [Concomitant]
  4. PRELONE [Concomitant]
  5. PARATRAM [Concomitant]
  6. NIMESULIDE [Concomitant]

REACTIONS (2)
  - Spinal disorder [Unknown]
  - Device related infection [Unknown]
